FAERS Safety Report 6445606-3 (Version None)
Quarter: 2009Q4

REPORT INFORMATION
  Report Type: 
  Country: None (occurrence: None)
  Receive Date: 20091118
  Receipt Date: 20091118
  Transmission Date: 20100525
  Serious: Yes (Death, Other)
  Sender: FDA-Public Use
  Company Number: None

PATIENT
  Sex: Male
  Weight: 93.8946 kg

DRUGS (4)
  1. METFORMIN HCL [Suspect]
     Indication: DIABETES MELLITUS
     Dosage: 2X DAY MOUTH
     Route: 048
     Dates: start: 20080101, end: 20090101
  2. PRILOSEC [Suspect]
  3. ALTACE [Suspect]
  4. NORVASC [Suspect]

REACTIONS (14)
  - ABDOMINAL PAIN UPPER [None]
  - ASTHENIA [None]
  - BACK PAIN [None]
  - COLD SWEAT [None]
  - CONSTIPATION [None]
  - DECREASED APPETITE [None]
  - DYSPHAGIA [None]
  - DYSPNOEA [None]
  - GASTROOESOPHAGEAL REFLUX DISEASE [None]
  - HEADACHE [None]
  - INSOMNIA [None]
  - PHARYNGEAL OEDEMA [None]
  - RESPIRATORY FAILURE [None]
  - WEIGHT DECREASED [None]
